FAERS Safety Report 11809840 (Version 5)
Quarter: 2019Q2

REPORT INFORMATION
  Report Type: Report from Study
  Country: CA (occurrence: CA)
  Receive Date: 20151208
  Receipt Date: 20190619
  Transmission Date: 20190711
  Serious: Yes (Other)
  Sender: FDA-Public Use
  Company Number: CA-ROCHE-1429353

PATIENT
  Age: 55 Year
  Sex: Male

DRUGS (10)
  1. PREDNISONE. [Concomitant]
     Active Substance: PREDNISONE
  2. CESAMET [Concomitant]
     Active Substance: NABILONE
  3. KADIAN [Concomitant]
     Active Substance: MORPHINE SULFATE
  4. COZAAR [Concomitant]
     Active Substance: LOSARTAN POTASSIUM
  5. GABAPENTIN. [Concomitant]
     Active Substance: GABAPENTIN
  6. ACTEMRA [Suspect]
     Active Substance: TOCILIZUMAB
     Indication: RHEUMATOID ARTHRITIS
     Route: 042
     Dates: start: 20140604, end: 20140702
  7. ACTEMRA [Suspect]
     Active Substance: TOCILIZUMAB
     Indication: RHEUMATOID ARTHRITIS
     Route: 058
     Dates: start: 20140723
  8. MELOXICAM. [Concomitant]
     Active Substance: MELOXICAM
  9. HYDROCHLOROTHIAZIDE. [Concomitant]
     Active Substance: HYDROCHLOROTHIAZIDE
  10. OXYCODONE [Concomitant]
     Active Substance: OXYCODONE

REACTIONS (10)
  - Heart rate decreased [Unknown]
  - Nail infection [Recovered/Resolved]
  - Injection site bruising [Not Recovered/Not Resolved]
  - Drug ineffective [Unknown]
  - Rheumatoid arthritis [Not Recovered/Not Resolved]
  - Infusion related reaction [Recovered/Resolved]
  - Atrial fibrillation [Unknown]
  - Cardiac disorder [Unknown]
  - Influenza [Unknown]
  - Injection site haemorrhage [Not Recovered/Not Resolved]

NARRATIVE: CASE EVENT DATE: 20140702
